FAERS Safety Report 8424199-5 (Version None)
Quarter: 2012Q2

REPORT INFORMATION
  Report Type: 
  Country: None (occurrence: None)
  Receive Date: 20120608
  Receipt Date: 20120314
  Transmission Date: 20120825
  Serious: No
  Sender: FDA-Public Use
  Company Number: US-ASTRAZENECA-2012SE17722

PATIENT
  Age: 73 Year
  Sex: Male
  Weight: 67.1 kg

DRUGS (5)
  1. PULMICORT FLEXHALER [Suspect]
     Indication: ASTHMA
     Dosage: 180MCG, ONE PUFF, BID
     Route: 055
  2. PRILOSEC [Suspect]
     Indication: BARRETT'S OESOPHAGUS
     Route: 048
  3. TAMSULOSIN HCL [Concomitant]
     Indication: PROSTATIC DISORDER
  4. AVODART [Concomitant]
     Indication: PROSTATIC DISORDER
  5. LIPITOR [Concomitant]
     Indication: BLOOD CHOLESTEROL

REACTIONS (2)
  - DYSPHONIA [None]
  - OFF LABEL USE [None]
